FAERS Safety Report 8008262-9 (Version None)
Quarter: 2011Q4

REPORT INFORMATION
  Report Type: 
  Country: None (occurrence: None)
  Receive Date: 20111222
  Receipt Date: 20111222
  Transmission Date: 20120403
  Serious: Yes (Other)
  Sender: FDA-Public Use
  Company Number: None

PATIENT
  Age: 16 Year
  Sex: Male
  Weight: 41.2773 kg

DRUGS (7)
  1. IBUPROFEN [Concomitant]
  2. OLANZAPINE [Suspect]
     Dosage: 2.5 - 15 MG/DAY
  3. CLONAZEPAM [Concomitant]
  4. TRAZODONE HCL [Concomitant]
  5. OLANZAPINE [Suspect]
     Dosage: 2.5 - 5 MG PO PRN/DAY
  6. MIRALAX [Concomitant]
  7. BENZTROPINE MESYLATE [Concomitant]

REACTIONS (3)
  - ARTHRALGIA [None]
  - JOINT SWELLING [None]
  - ERYTHEMA [None]
